FAERS Safety Report 17445483 (Version 11)
Quarter: 2021Q2

REPORT INFORMATION
  Report Type: Report from Study
  Country: US (occurrence: US)
  Receive Date: 20200221
  Receipt Date: 20210522
  Transmission Date: 20210716
  Serious: Yes (Hospitalization, Other)
  Sender: FDA-Public Use
  Company Number: NVSC2020US048243

PATIENT
  Sex: Male
  Weight: 78.01 kg

DRUGS (10)
  1. AMBRISENTAN [Concomitant]
     Active Substance: AMBRISENTAN
     Indication: PRODUCT USED FOR UNKNOWN INDICATION
     Dosage: UNK
     Route: 065
  2. VALERIAN ROOT [Concomitant]
     Active Substance: VALERIAN
     Indication: SLEEP DISORDER
     Dosage: UNK
     Route: 065
  3. TREPROSTINIL. [Suspect]
     Active Substance: TREPROSTINIL
     Indication: PULMONARY ARTERIAL HYPERTENSION
     Dosage: UNK (27 NG/KG/MIN CONTINUOUS)
     Route: 042
     Dates: start: 20200213
  4. TREPROSTINIL. [Suspect]
     Active Substance: TREPROSTINIL
     Dosage: UNK (30 NG/KG/MIN CONTINUOUS)
     Route: 042
     Dates: start: 20200213, end: 20210506
  5. COUMADIN [Concomitant]
     Active Substance: WARFARIN SODIUM
     Indication: PRODUCT USED FOR UNKNOWN INDICATION
     Dosage: UNK
     Route: 065
  6. TREPROSTINIL. [Suspect]
     Active Substance: TREPROSTINIL
     Dosage: UNK (23 NG/KG/MIN CONTINUOUS)
     Route: 065
     Dates: start: 20200213
  7. TREPROSTINIL. [Suspect]
     Active Substance: TREPROSTINIL
     Dosage: UNK (30 NG/KG/MIN CONTINUOUS)
     Route: 042
     Dates: start: 20200213
  8. LETAIRIS [Concomitant]
     Active Substance: AMBRISENTAN
     Indication: PRODUCT USED FOR UNKNOWN INDICATION
     Dosage: UNK
     Route: 065
  9. TREPROSTINIL. [Suspect]
     Active Substance: TREPROSTINIL
     Dosage: UNK (30 NG/KG/MIN)
     Route: 042
     Dates: start: 20200213
  10. TADALAFIL. [Concomitant]
     Active Substance: TADALAFIL
     Indication: PRODUCT USED FOR UNKNOWN INDICATION
     Dosage: UNK
     Route: 065

REACTIONS (11)
  - Dizziness [Unknown]
  - Heart sounds abnormal [Unknown]
  - Device issue [Unknown]
  - Pneumonia [Unknown]
  - Back pain [Unknown]
  - Chest pain [Unknown]
  - Headache [Unknown]
  - Nausea [Unknown]
  - Feeling abnormal [Unknown]
  - Erythema [Unknown]
  - Pain in jaw [Unknown]
